FAERS Safety Report 25014782 (Version 1)
Quarter: 2025Q1

REPORT INFORMATION
  Report Type: Spontaneous
  Country: RO (occurrence: None)
  Receive Date: 20250226
  Receipt Date: 20250226
  Transmission Date: 20250409
  Serious: Yes (Other)
  Sender: INCYTE
  Company Number: RO-002147023-NVSC2025RO029581

PATIENT
  Age: 57 Year

DRUGS (2)
  1. RUXOLITINIB [Suspect]
     Active Substance: RUXOLITINIB
     Indication: Polycythaemia vera
     Dosage: 10 MG, BID
     Route: 065
  2. RUXOLITINIB [Suspect]
     Active Substance: RUXOLITINIB
     Dosage: 5 MG, BID
     Route: 065

REACTIONS (1)
  - Cytopenia [Recovered/Resolved]
